FAERS Safety Report 9896667 (Version 1)
Quarter: 2014Q1

REPORT INFORMATION
  Report Type: Spontaneous
  Country: US (occurrence: US)
  Receive Date: 20140213
  Receipt Date: 20140213
  Transmission Date: 20141002
  Serious: Yes (Other)
  Sender: FDA-Public Use
  Company Number: US-BRISTOL-MYERS SQUIBB COMPANY-18884734

PATIENT
  Age: 16 Year
  Sex: Female

DRUGS (1)
  1. ORENCIA FOR INJ 250 MG/VIAL [Suspect]
     Dosage: DOSE : 1 VIAL?INFUSION
     Route: 042

REACTIONS (4)
  - Body temperature increased [Unknown]
  - Erythema [Unknown]
  - Swelling [Unknown]
  - Dyspnoea [Unknown]
